FAERS Safety Report 11523042 (Version 1)
Quarter: 2015Q3

REPORT INFORMATION
  Report Type: Spontaneous
  Country: US (occurrence: US)
  Receive Date: 20150918
  Receipt Date: 20150918
  Transmission Date: 20151125
  Serious: No
  Sender: FDA-Public Use
  Company Number: US-ROCHE-737267

PATIENT
  Age: 38 Year
  Sex: Female

DRUGS (2)
  1. PEGASYS [Suspect]
     Active Substance: PEGINTERFERON ALFA-2A
     Indication: HEPATITIS C
     Dosage: FORM: VIAL
     Route: 065
  2. RIBAVIRIN. [Suspect]
     Active Substance: RIBAVIRIN
     Indication: HEPATITIS C
     Dosage: DIVIDED DOSES
     Route: 065

REACTIONS (11)
  - Stomatitis [Recovering/Resolving]
  - Depressive symptom [Unknown]
  - Rash pruritic [Not Recovered/Not Resolved]
  - White blood cell count decreased [Unknown]
  - Insomnia [Unknown]
  - Skin burning sensation [Unknown]
  - Palpitations [Unknown]
  - Bone pain [Unknown]
  - Dizziness [Unknown]
  - Insomnia [Unknown]
  - Anxiety [Unknown]

NARRATIVE: CASE EVENT DATE: 20101003
